FAERS Safety Report 16016197 (Version 1)
Quarter: 2019Q1

REPORT INFORMATION
  Report Type: Spontaneous
  Country: IL (occurrence: IL)
  Receive Date: 20190228
  Receipt Date: 20190228
  Transmission Date: 20190418
  Serious: Yes (Hospitalization)
  Sender: FDA-Public Use
  Company Number: IL-TEVA-2019-IL-1006776

PATIENT
  Sex: Male
  Weight: 100 kg

DRUGS (4)
  1. ENOXAPARIN SODIUM. [Concomitant]
     Active Substance: ENOXAPARIN SODIUM
     Dosage: 40 MILLIGRAM DAILY;
     Route: 058
  2. PENICILLIN G SODIUM 10 MU [Suspect]
     Active Substance: PENICILLIN G SODIUM
     Dates: start: 201901
  3. SODIUM CHLORIDE. [Suspect]
     Active Substance: SODIUM CHLORIDE
     Dosage: NACL 0.9% 100ML VIAFLO
     Dates: start: 201901
  4. METFORMIN HCL [Concomitant]
     Active Substance: METFORMIN HYDROCHLORIDE
     Indication: DIABETES MELLITUS
     Dosage: 1700 MILLIGRAM DAILY;
     Route: 048

REACTIONS (32)
  - Blood calcium decreased [Unknown]
  - Feeling abnormal [Recovering/Resolving]
  - Hyperhidrosis [Recovering/Resolving]
  - Hepatic function abnormal [Recovered/Resolved]
  - Nausea [Unknown]
  - Oedema peripheral [Recovering/Resolving]
  - Pallor [Recovering/Resolving]
  - Drug hypersensitivity [None]
  - Ageusia [Not Recovered/Not Resolved]
  - Vital functions abnormal [Unknown]
  - Urinary incontinence [Unknown]
  - Decreased appetite [Not Recovered/Not Resolved]
  - Eye swelling [Recovering/Resolving]
  - Oral discomfort [Unknown]
  - Face oedema [Recovering/Resolving]
  - Skin exfoliation [Unknown]
  - Hepatic failure [Unknown]
  - Candida infection [None]
  - Renal failure [Unknown]
  - Oxygen saturation decreased [Recovering/Resolving]
  - Postoperative wound infection [None]
  - Pathogen resistance [None]
  - Septic shock [Unknown]
  - Abdominal pain [Unknown]
  - Dyspepsia [Unknown]
  - Dialysis [None]
  - Renal impairment [Not Recovered/Not Resolved]
  - Dry mouth [Unknown]
  - Confusional state [Recovering/Resolving]
  - Vomiting [Recovering/Resolving]
  - Swelling [Recovering/Resolving]
  - Refusal of treatment by patient [None]

NARRATIVE: CASE EVENT DATE: 2019
